FAERS Safety Report 15859065 (Version 2)
Quarter: 2019Q1

REPORT INFORMATION
  Report Type: Spontaneous
  Country: US (occurrence: US)
  Receive Date: 20190123
  Receipt Date: 20190215
  Transmission Date: 20190417
  Serious: Yes (Hospitalization)
  Sender: FDA-Public Use
  Company Number: US-SA-2019SA018329

PATIENT
  Age: 44 Year
  Sex: Male

DRUGS (1)
  1. LANTUS [Suspect]
     Active Substance: INSULIN GLARGINE
     Indication: DIABETES MELLITUS
     Dosage: 20 U, HS AT NIGHT-TIME
     Route: 065

REACTIONS (3)
  - Device operational issue [Unknown]
  - Blood glucose increased [Unknown]
  - Product dose omission [Unknown]
